FAERS Safety Report 17628220 (Version 2)
Quarter: 2021Q2

REPORT INFORMATION
  Report Type: Spontaneous
  Country: CA (occurrence: CA)
  Receive Date: 20200406
  Receipt Date: 20210414
  Transmission Date: 20210716
  Serious: Yes (Hospitalization, Other)
  Sender: FDA-Public Use
  Company Number: CA-SAMSUNG BIOEPIS-SB-2020-11073

PATIENT
  Age: 54 Year
  Sex: Female

DRUGS (1)
  1. INFLIXIMAB [Suspect]
     Active Substance: INFLIXIMAB
     Indication: PSORIATIC ARTHROPATHY
     Route: 042

REACTIONS (13)
  - Blood creatinine increased [Unknown]
  - Vomiting [Unknown]
  - Dyspnoea [Unknown]
  - Hepatic cirrhosis [Unknown]
  - Blood pressure decreased [Unknown]
  - Nausea [Unknown]
  - Suspected COVID-19 [Unknown]
  - Blood pressure diastolic decreased [Unknown]
  - Fall [Unknown]
  - Joint instability [Unknown]
  - Generalised oedema [Unknown]
  - Contusion [Unknown]
  - Dehydration [Unknown]
